FAERS Safety Report 8186923-9 (Version None)
Quarter: 2012Q1

REPORT INFORMATION
  Report Type: 
  Country: None (occurrence: None)
  Receive Date: 20120306
  Receipt Date: 20120302
  Transmission Date: 20120608
  Serious: Yes (Other)
  Sender: FDA-Public Use
  Company Number: US-ABBOTT-11P-163-0886052-00

PATIENT
  Sex: Male
  Weight: 81.72 kg

DRUGS (10)
  1. SOMA [Concomitant]
     Indication: BACK DISORDER
  2. AMBIEN [Concomitant]
     Indication: INSOMNIA
  3. KLONOPIN [Concomitant]
     Indication: RESTLESS LEGS SYNDROME
  4. HUMIRA [Suspect]
     Indication: ANKYLOSING SPONDYLITIS
     Route: 058
     Dates: start: 20090101
  5. HUMIRA [Suspect]
  6. OXYCODONE HCL [Concomitant]
     Indication: ARTHRALGIA
  7. HUMIRA [Suspect]
     Indication: CROHN'S DISEASE
  8. ZAFIRLUKAST [Concomitant]
     Indication: SINUS DISORDER
  9. OMEPRAZOLE [Concomitant]
     Indication: GASTROOESOPHAGEAL REFLUX DISEASE
  10. OXYCODONE HCL [Concomitant]
     Indication: BACK DISORDER

REACTIONS (1)
  - FISTULA [None]
